FAERS Safety Report 7827148-3 (Version None)
Quarter: 2011Q4

REPORT INFORMATION
  Report Type: 
  Country: None (occurrence: None)
  Receive Date: 20111020
  Receipt Date: 20111017
  Transmission Date: 20120403
  Serious: Yes (Death, Other)
  Sender: FDA-Public Use
  Company Number: JP-ELI_LILLY_AND_COMPANY-JP201105007415

PATIENT
  Age: 65 Year
  Sex: Female

DRUGS (2)
  1. CISPLATIN [Concomitant]
     Route: 042
  2. ALIMTA [Suspect]
     Indication: NEOPLASM
     Route: 042

REACTIONS (2)
  - CEREBRAL INFARCTION [None]
  - NEOPLASM PROGRESSION [None]
